FAERS Safety Report 7131570-0 (Version None)
Quarter: 2010Q4

REPORT INFORMATION
  Report Type: 
  Country: None (occurrence: None)
  Receive Date: 20101201
  Receipt Date: 20101125
  Transmission Date: 20110411
  Serious: Yes (Life-Threatening)
  Sender: FDA-Public Use
  Company Number: JP-ELI_LILLY_AND_COMPANY-JP201003002541

PATIENT
  Sex: Male
  Weight: 55.7 kg

DRUGS (8)
  1. PEMETREXED [Suspect]
     Indication: LUNG ADENOCARCINOMA STAGE III
     Dosage: 800 MG, OTHER
     Route: 042
     Dates: start: 20100203, end: 20100203
  2. PEMETREXED [Suspect]
     Dosage: 400 MG, OTHER
     Route: 042
     Dates: start: 20100303, end: 20100303
  3. CARBOPLATIN [Concomitant]
     Indication: LUNG ADENOCARCINOMA STAGE III
     Dosage: 530 MG, OTHER
     Route: 042
     Dates: start: 20100203, end: 20100203
  4. FOLIC ACID [Concomitant]
     Dosage: 0.5 MG, DAILY (1/D)
     Route: 048
     Dates: start: 20100129, end: 20100303
  5. VITAMIN B-12 [Concomitant]
     Dates: start: 20100129, end: 20100129
  6. KYTRIL [Concomitant]
     Dosage: UNK, OTHER
     Dates: start: 20100203, end: 20100204
  7. DEXART [Concomitant]
     Dosage: UNK, OTHER
     Dates: start: 20100203, end: 20100204
  8. PRIMPERAN [Concomitant]
     Dosage: UNK, OTHER
     Dates: start: 20100203, end: 20100204

REACTIONS (1)
  - ANAPHYLACTIC SHOCK [None]
